FAERS Safety Report 18087659 (Version 4)
Quarter: 2022Q1

REPORT INFORMATION
  Report Type: Report from Study
  Country: IL (occurrence: IL)
  Receive Date: 20200729
  Receipt Date: 20220330
  Transmission Date: 20220423
  Serious: Yes (Death, Hospitalization)
  Sender: FDA-Public Use
  Company Number: IL-ABBVIE-20K-082-3501820-00

PATIENT
  Age: 70 Year
  Sex: Female
  Weight: 72 kg

DRUGS (39)
  1. VENETOCLAX [Suspect]
     Active Substance: VENETOCLAX
     Indication: Acute myeloid leukaemia
     Dosage: 100 MG, RAMP UP
     Route: 048
     Dates: start: 20200527, end: 20200527
  2. VENETOCLAX [Suspect]
     Active Substance: VENETOCLAX
     Dosage: 200 MG, RAMP UP
     Route: 048
     Dates: start: 20200528, end: 20200528
  3. VENETOCLAX [Suspect]
     Active Substance: VENETOCLAX
     Dosage: 400 MG, INTERRUPTION DUE TO COUNT RECOVERY (ANC, PLATELETS OR HEMOGLOBIN)
     Route: 048
     Dates: start: 20200529, end: 20200722
  4. VENETOCLAX [Suspect]
     Active Substance: VENETOCLAX
     Dosage: 400 MG, INTERRUPTION DUE TO COUNT RECOVERY (ANC, PLATELETS OR HEMOGLOBIN)
     Route: 048
     Dates: start: 20200806, end: 20200820
  5. VENETOCLAX [Suspect]
     Active Substance: VENETOCLAX
     Dosage: 400 MG, INTERRUPTION DUE TO COUNT RECOVERY (ANC, PLATELETS OR HEMOGLOBIN)
     Route: 048
     Dates: start: 20200906, end: 20200920
  6. VENETOCLAX [Suspect]
     Active Substance: VENETOCLAX
     Dosage: 400 MG, INTERRUPTION DUE TO COUNT RECOVERY (ANC, PLATELETS OR HEMOGLOBIN)
     Route: 048
     Dates: start: 20201018, end: 20201101
  7. VENETOCLAX [Suspect]
     Active Substance: VENETOCLAX
     Dosage: 400 MG, INTERRUPTION DUE TO ADVERSE EVENT
     Route: 048
     Dates: start: 20201118, end: 20201126
  8. VENETOCLAX [Suspect]
     Active Substance: VENETOCLAX
     Dosage: 400 MG, INTERRUPTION DUE TO COUNT RECOVERY (ANC, PLATELETS OR HEMOGLOBIN)
     Route: 048
     Dates: start: 20201206, end: 20201212
  9. VENETOCLAX [Suspect]
     Active Substance: VENETOCLAX
     Dosage: DISCONTINUATION DUE TO AE
     Route: 048
     Dates: start: 20201220, end: 20220220
  10. AZACITIDINE [Suspect]
     Active Substance: AZACITIDINE
     Indication: Acute myeloid leukaemia
     Dosage: 135 MG, CYCLE 1
     Route: 058
     Dates: start: 20200527, end: 20200602
  11. AZACITIDINE [Suspect]
     Active Substance: AZACITIDINE
     Dosage: 135 MG, CYCLE 2
     Route: 058
     Dates: start: 20200708, end: 20200716
  12. AZACITIDINE [Suspect]
     Active Substance: AZACITIDINE
     Dosage: 135 MG, CYCLE 3
     Route: 058
     Dates: start: 20200806, end: 20200816
  13. AZACITIDINE [Suspect]
     Active Substance: AZACITIDINE
     Dosage: 135 MG, CYCLE 4
     Route: 058
     Dates: start: 20200906, end: 20200914
  14. AZACITIDINE [Suspect]
     Active Substance: AZACITIDINE
     Dosage: 135 MG, CYCLE 5
     Route: 058
     Dates: start: 20201018, end: 20201026
  15. AZACITIDINE [Suspect]
     Active Substance: AZACITIDINE
     Dosage: 135 MG, CYCLE 6
     Route: 058
     Dates: start: 20201118, end: 20201126
  16. AZACITIDINE [Suspect]
     Active Substance: AZACITIDINE
     Dosage: 135 MG, CYCLE 7
     Route: 058
     Dates: start: 20201220, end: 20201228
  17. AZACITIDINE [Suspect]
     Active Substance: AZACITIDINE
     Dosage: 135 MG, CYCLE 8
     Route: 058
     Dates: start: 20210124, end: 20210201
  18. AZACITIDINE [Suspect]
     Active Substance: AZACITIDINE
     Dosage: 135 MG, CYCLE 9
     Route: 058
     Dates: start: 20210221, end: 20210227
  19. AZACITIDINE [Suspect]
     Active Substance: AZACITIDINE
     Dosage: 135 MG, CYCLE 10
     Route: 058
     Dates: start: 20210321, end: 20210329
  20. AZACITIDINE [Suspect]
     Active Substance: AZACITIDINE
     Dosage: 135 MG, CYCLE 11
     Route: 058
     Dates: start: 20210418, end: 20210424
  21. AZACITIDINE [Suspect]
     Active Substance: AZACITIDINE
     Dosage: 135 MG, CYCLE 12
     Route: 058
     Dates: start: 20210523, end: 20210529
  22. AZACITIDINE [Suspect]
     Active Substance: AZACITIDINE
     Dosage: 135 MG, CYCLE 13
     Route: 058
     Dates: start: 20210620, end: 20210627
  23. AZACITIDINE [Suspect]
     Active Substance: AZACITIDINE
     Dosage: 135 MG, CYCLE 14
     Route: 058
     Dates: start: 20210718, end: 20210726
  24. AZACITIDINE [Suspect]
     Active Substance: AZACITIDINE
     Dosage: 135 MG, CYCLE 15
     Route: 058
     Dates: start: 20210829, end: 20210906
  25. AZACITIDINE [Suspect]
     Active Substance: AZACITIDINE
     Dosage: 135 MG, CYCLE 16
     Route: 058
     Dates: start: 20211003, end: 20211009
  26. AZACITIDINE [Suspect]
     Active Substance: AZACITIDINE
     Dosage: 135 MG, CYCLE 17
     Route: 058
     Dates: start: 20211121, end: 20211203
  27. AZACITIDINE [Suspect]
     Active Substance: AZACITIDINE
     Dosage: 135 MG, CYCLE 18
     Route: 058
     Dates: start: 20220102, end: 20220108
  28. AZACITIDINE [Suspect]
     Active Substance: AZACITIDINE
     Dosage: 135 MG, CYCLE 19
     Route: 058
     Dates: start: 20220130, end: 20220205
  29. ASPIRIN [Concomitant]
     Active Substance: ASPIRIN
     Indication: Myocardial ischaemia
     Dates: start: 2016
  30. BISOPROLOL FUMARATE [Concomitant]
     Active Substance: BISOPROLOL FUMARATE
     Indication: Myocardial ischaemia
     Dates: start: 2018
  31. DIGOXIN [Concomitant]
     Active Substance: DIGOXIN
     Indication: Myocardial ischaemia
     Dates: start: 2019
  32. ENTRESTO [Concomitant]
     Active Substance: SACUBITRIL\VALSARTAN
     Indication: Myocardial ischaemia
     Dates: start: 2018
  33. FUSID [Concomitant]
     Indication: Myocardial ischaemia
     Dates: start: 2010
  34. NOVORAPID [Concomitant]
     Active Substance: INSULIN ASPART
     Indication: Diabetes mellitus
     Dates: start: 2012
  35. PFIZER-BIONTECH COVID-19 VACCINE [Concomitant]
     Active Substance: TOZINAMERAN
     Indication: COVID-19 immunisation
     Dosage: FIRST DOSE
     Route: 030
     Dates: start: 20210121, end: 20210121
  36. PFIZER-BIONTECH COVID-19 VACCINE [Concomitant]
     Active Substance: TOZINAMERAN
     Dosage: SECOND DOSE
     Route: 030
     Dates: start: 20210214, end: 20210214
  37. PFIZER-BIONTECH COVID-19 VACCINE [Concomitant]
     Active Substance: TOZINAMERAN
     Dosage: BOOSTER DOSE
     Route: 030
     Dates: start: 20210812, end: 20210812
  38. PFIZER-BIONTECH COVID-19 VACCINE [Concomitant]
     Active Substance: TOZINAMERAN
     Route: 030
     Dates: start: 20220130, end: 20220130
  39. ALLOPURINOL [Concomitant]
     Active Substance: ALLOPURINOL
     Indication: Prophylaxis
     Dates: start: 20200527

REACTIONS (8)
  - Pulmonary congestion [Recovered/Resolved]
  - Pulmonary congestion [Recovered/Resolved]
  - COVID-19 [Fatal]
  - Bacteraemia [Recovered/Resolved]
  - Febrile neutropenia [Recovered/Resolved]
  - Febrile neutropenia [Recovered/Resolved]
  - Febrile neutropenia [Recovered/Resolved]
  - Neutropenic sepsis [Recovered/Resolved]

NARRATIVE: CASE EVENT DATE: 20200626
